FAERS Safety Report 5688207-7 (Version None)
Quarter: 2008Q1

REPORT INFORMATION
  Report Type: 
  Country: None (occurrence: None)
  Receive Date: 20080327
  Receipt Date: 20080318
  Transmission Date: 20080703
  Serious: Yes (Death)
  Sender: FDA-Public Use
  Company Number: FABR-1000151

PATIENT
  Age: 61 Year
  Sex: Male
  Weight: 63.9 kg

DRUGS (1)
  1. FABRAZYME [Suspect]
     Indication: FABRY'S DISEASE
     Dosage: 1 MG/KG, Q2W
     Dates: start: 20011114, end: 20080101

REACTIONS (1)
  - CARDIAC FAILURE ACUTE [None]
